FAERS Safety Report 4397052-4 (Version None)
Quarter: 2004Q3

REPORT INFORMATION
  Report Type: 
  Country: None (occurrence: None)
  Receive Date: 20040714
  Receipt Date: 20040708
  Transmission Date: 20050211
  Serious: Yes (Other)
  Sender: FDA-Public Use
  Company Number: PHBS2004JP09202

PATIENT
  Age: 25 Year
  Sex: Female

DRUGS (5)
  1. NEORAL [Suspect]
     Indication: RENAL TRANSPLANT
     Dosage: 250 MG/D
     Route: 048
     Dates: start: 20040626, end: 20040628
  2. SIMULECT [Suspect]
     Indication: RENAL TRANSPLANT
     Dosage: 20 MG, ONCE/SINGLE
     Dates: start: 20040629, end: 20040629
  3. SIMULECT [Suspect]
     Dosage: 20 MG, ONCE/SINGLE
     Dates: start: 20040703, end: 20040703
  4. PROGRAF [Suspect]
     Indication: RENAL TRANSPLANT
     Dosage: 0.9 MG/D
     Dates: start: 20040629
  5. CELLCEPT [Concomitant]
     Indication: RENAL TRANSPLANT
     Dosage: 1000 MG/D
     Route: 048
     Dates: start: 20040629

REACTIONS (8)
  - CONVULSION [None]
  - DISEASE PROGRESSION [None]
  - DYSTONIA [None]
  - GAZE PALSY [None]
  - LOSS OF CONSCIOUSNESS [None]
  - MUSCLE CRAMP [None]
  - NEUROTOXICITY [None]
  - TREMOR [None]
